FAERS Safety Report 5755396-5 (Version None)
Quarter: 2008Q2

REPORT INFORMATION
  Report Type: 
  Country: None (occurrence: None)
  Receive Date: 20080529
  Receipt Date: 20080529
  Transmission Date: 20081010
  Serious: No
  Sender: FDA-Public Use
  Company Number: None

PATIENT
  Age: 31 Year
  Sex: Female

DRUGS (3)
  1. CHANTIX [Suspect]
     Indication: SMOKING CESSATION THERAPY
     Dosage: 0.5 MG QD X 3D, BID X 3D  PO
     Route: 048
     Dates: start: 20070913, end: 20070919
  2. CHANTIX [Suspect]
     Indication: SMOKING CESSATION THERAPY
     Dosage: 1 MG BID PO
     Route: 048
     Dates: start: 20070920, end: 20071206
  3. ORAL CONTRACEPTIVE [Concomitant]

REACTIONS (2)
  - ABNORMAL DREAMS [None]
  - INSOMNIA [None]
